FAERS Safety Report 12755743 (Version 1)
Quarter: 2016Q3

REPORT INFORMATION
  Report Type: Report from Study
  Country: PL (occurrence: PL)
  Receive Date: 20160916
  Receipt Date: 20160916
  Transmission Date: 20161109
  Serious: Yes (Other)
  Sender: FDA-Public Use
  Company Number: PL-TEVA-691689ISR

PATIENT

DRUGS (1)
  1. METOPROLOL. [Suspect]
     Active Substance: METOPROLOL

REACTIONS (4)
  - Rash [Recovered/Resolved]
  - Lymphopenia [Recovered/Resolved]
  - Monocytosis [Recovered/Resolved]
  - Neutrophilia [Recovered/Resolved]
